FAERS Safety Report 5338600-7 (Version None)
Quarter: 2007Q2

REPORT INFORMATION
  Report Type: 
  Country: None (occurrence: None)
  Receive Date: 20070322
  Receipt Date: 20060814
  Transmission Date: 20071010
  Serious: Yes (Other)
  Sender: FDA-Public Use
  Company Number: 200612250BCC

PATIENT
  Age: 89 Year
  Sex: Female
  Weight: 68.0396 kg

DRUGS (10)
  1. ALEVE [Suspect]
     Indication: BACK PAIN
     Dosage: 440 MG, TOTAL DAILY, ORAL
     Route: 048
     Dates: start: 20060520
  2. SINEMET [Concomitant]
  3. POTASSIUM ACETATE [Concomitant]
  4. ASPIRIN [Concomitant]
  5. PROTONIX [Concomitant]
  6. METOPROLOL SUCCINATE [Concomitant]
  7. ENALAPRIL MALEATE [Concomitant]
  8. LASIX [Concomitant]
  9. ALBUTEROL [Concomitant]
  10. FLOVENT [Concomitant]

REACTIONS (5)
  - BACK PAIN [None]
  - DYSKINESIA [None]
  - HALLUCINATION [None]
  - SCREAMING [None]
  - SOMNOLENCE [None]
